FAERS Safety Report 20854048 (Version 1)
Quarter: 2022Q2

REPORT INFORMATION
  Report Type: Spontaneous
  Country: US (occurrence: US)
  Receive Date: 20220520
  Receipt Date: 20220520
  Transmission Date: 20220721
  Serious: Yes (Hospitalization, Other)
  Sender: FDA-Public Use
  Company Number: US-CELGENE-USA-20220203720

PATIENT
  Age: 64 Year
  Sex: Female
  Weight: 83.4 kg

DRUGS (9)
  1. BREYANZI [Suspect]
     Active Substance: LISOCABTAGENE MARALEUCEL
     Indication: Diffuse large B-cell lymphoma recurrent
     Dosage: FREQUENCY TEXT: SINGLE
     Route: 042
     Dates: start: 20220110, end: 20220110
  2. BREYANZI [Suspect]
     Active Substance: LISOCABTAGENE MARALEUCEL
     Route: 065
  3. BREYANZI [Suspect]
     Active Substance: LISOCABTAGENE MARALEUCEL
     Route: 065
  4. OMEPRAZOLE [Concomitant]
     Active Substance: OMEPRAZOLE
     Indication: Gastrooesophageal reflux disease
     Route: 048
     Dates: start: 20220122
  5. LEVOTHYROXINE [Concomitant]
     Active Substance: LEVOTHYROXINE
     Indication: Hypothyroidism
     Dosage: FREQUENCY TEXT: NOT PROVIDED
     Route: 048
  6. ALLOPURINOL [Concomitant]
     Active Substance: ALLOPURINOL
     Indication: Prophylaxis
     Route: 048
     Dates: start: 20220105, end: 20220214
  7. VALACYCLOVIR [Concomitant]
     Active Substance: VALACYCLOVIR HYDROCHLORIDE
     Indication: Prophylaxis
     Route: 048
     Dates: start: 20220105
  8. CELEBREX [Concomitant]
     Active Substance: CELECOXIB
     Indication: Arthritis
     Route: 048
     Dates: start: 20220122
  9. VANCOMYCIN [Concomitant]
     Active Substance: VANCOMYCIN
     Indication: Antibiotic therapy
     Route: 048
     Dates: start: 20220117, end: 20220131

REACTIONS (3)
  - Febrile neutropenia [Unknown]
  - Neurotoxicity [Recovered/Resolved]
  - Clostridium difficile infection [Recovered/Resolved]

NARRATIVE: CASE EVENT DATE: 20220115
